FAERS Safety Report 19867426 (Version 1)
Quarter: 2021Q3

REPORT INFORMATION
  Report Type: Spontaneous
  Country: AU (occurrence: AU)
  Receive Date: 20210922
  Receipt Date: 20210922
  Transmission Date: 20211014
  Serious: Yes (Hospitalization)
  Sender: FDA-Public Use
  Company Number: AU-MYLANLABS-2021M1064770

PATIENT
  Age: 14 Year
  Sex: Male

DRUGS (2)
  1. DEXAMETHASONE. [Suspect]
     Active Substance: DEXAMETHASONE
     Indication: MENINGITIS BACTERIAL
     Dosage: 0.15 MILLIGRAM/KILOGRAM, Q4D
     Route: 065
  2. CEFTRIAXONE. [Concomitant]
     Active Substance: CEFTRIAXONE
     Indication: MENINGITIS BACTERIAL
     Dosage: UNK
     Route: 042

REACTIONS (3)
  - Meningitis enterococcal [Recovered/Resolved]
  - Microcytic anaemia [Unknown]
  - Strongyloidiasis [Recovered/Resolved]
